FAERS Safety Report 15692237 (Version 1)
Quarter: 2018Q4

REPORT INFORMATION
  Report Type: Spontaneous
  Country: ES (occurrence: ES)
  Receive Date: 20181205
  Receipt Date: 20181205
  Transmission Date: 20190205
  Serious: Yes (Hospitalization, Other)
  Sender: FDA-Public Use
  Company Number: ES-BRISTOL-MYERS SQUIBB COMPANY-BMS-2018-113763

PATIENT
  Age: 76 Year
  Sex: Male
  Weight: 82.7 kg

DRUGS (1)
  1. NIVOLUMAB [Suspect]
     Active Substance: NIVOLUMAB
     Indication: LUNG NEOPLASM MALIGNANT
     Dosage: 240 MG, Q2WK
     Route: 042
     Dates: start: 20170920, end: 20180605

REACTIONS (2)
  - Autoimmune hypothyroidism [Recovered/Resolved]
  - Vitiligo [Recovered/Resolved]

NARRATIVE: CASE EVENT DATE: 20180227
